FAERS Safety Report 4982708-2 (Version None)
Quarter: 2006Q2

REPORT INFORMATION
  Report Type: 
  Country: None (occurrence: None)
  Receive Date: 20060425
  Receipt Date: 20050923
  Transmission Date: 20061013
  Serious: Yes (Hospitalization)
  Sender: FDA-Public Use
  Company Number: US-MERCK-0509USA03919

PATIENT
  Age: 48 Year
  Sex: Female
  Weight: 114 kg

DRUGS (4)
  1. VIOXX [Suspect]
     Indication: PAIN
     Route: 048
     Dates: start: 20000807, end: 20020828
  2. VIOXX [Suspect]
     Route: 048
     Dates: start: 20020828, end: 20040101
  3. VIOXX [Suspect]
     Indication: ARTHRITIS
     Route: 048
     Dates: start: 20000807, end: 20020828
  4. VIOXX [Suspect]
     Route: 048
     Dates: start: 20020828, end: 20040101

REACTIONS (3)
  - CHEST PAIN [None]
  - INJURY [None]
  - PULMONARY EMBOLISM [None]
